FAERS Safety Report 4287367-2 (Version None)
Quarter: 2004Q1

REPORT INFORMATION
  Report Type: 
  Country: None (occurrence: None)
  Receive Date: 20040205
  Receipt Date: 20040121
  Transmission Date: 20041129
  Serious: Yes (Hospitalization)
  Sender: FDA-Public Use
  Company Number: 191049

PATIENT
  Age: 61 Year
  Sex: Female
  Weight: 50.1225 kg

DRUGS (4)
  1. AVONEX [Suspect]
     Indication: MULTIPLE SCLEROSIS
     Dates: start: 19980101
  2. ^ASTHMA INHALERS^ [Concomitant]
  3. MYSOLINE ^ICI^ [Concomitant]
  4. BACLOFEN [Concomitant]

REACTIONS (4)
  - CONDITION AGGRAVATED [None]
  - HIP ARTHROPLASTY [None]
  - HYPERSENSITIVITY [None]
  - MULTIPLE SCLEROSIS [None]
